FAERS Safety Report 24035347 (Version 1)
Quarter: 2024Q3

REPORT INFORMATION
  Report Type: Spontaneous
  Country: BR (occurrence: BR)
  Receive Date: 20240701
  Receipt Date: 20240701
  Transmission Date: 20241016
  Serious: Yes (Other)
  Sender: ROCHE
  Company Number: BR-ROCHE-10000011333

PATIENT
  Age: 67 Year

DRUGS (1)
  1. ATEZOLIZUMAB [Suspect]
     Active Substance: ATEZOLIZUMAB
     Indication: Lung neoplasm malignant
     Route: 065
     Dates: start: 20220314

REACTIONS (3)
  - Squamous cell carcinoma [Unknown]
  - Dyspnoea [Unknown]
  - Lymphadenopathy [Unknown]
